FAERS Safety Report 21778153 (Version 12)
Quarter: 2025Q4

REPORT INFORMATION
  Report Type: Report from Study
  Country: CA (occurrence: CA)
  Receive Date: 20221226
  Receipt Date: 20251221
  Transmission Date: 20260118
  Serious: Yes (Other)
  Sender: TAKEDA
  Company Number: CA-TAKEDA-2022TUS099641

PATIENT
  Age: 70 Year
  Sex: Male
  Weight: 100 kg

DRUGS (3)
  1. VEDOLIZUMAB [Suspect]
     Active Substance: VEDOLIZUMAB
     Indication: Colitis ulcerative
     Dosage: 300 MILLIGRAM
  2. MESALAMINE [Concomitant]
     Active Substance: MESALAMINE
     Dosage: UNK
  3. Cortiment [Concomitant]
     Dosage: UNK

REACTIONS (3)
  - Haematochezia [Unknown]
  - Rectal haemorrhage [Recovered/Resolved]
  - Frequent bowel movements [Unknown]
